FAERS Safety Report 12104319 (Version 6)
Quarter: 2016Q2

REPORT INFORMATION
  Report Type: Report from Study
  Country: US (occurrence: US)
  Receive Date: 20160223
  Receipt Date: 20160419
  Transmission Date: 20160815
  Serious: Yes (Hospitalization, Other)
  Sender: FDA-Public Use
  Company Number: US-UCBSA-2016006232

PATIENT
  Age: 32 Year
  Sex: Female
  Weight: 63 kg

DRUGS (14)
  1. IMURAN [Concomitant]
     Active Substance: AZATHIOPRINE
     Dosage: 50 MG DAILY
     Route: 048
     Dates: start: 20151113, end: 20160111
  2. FERROUS GLUCONATE [Concomitant]
     Active Substance: FERROUS GLUCONATE
     Dosage: 236 MG (27 MG IRON) 2 DAILY
     Route: 048
  3. IMURAN [Concomitant]
     Active Substance: AZATHIOPRINE
     Dosage: 50 MG, 2X/DAY (BID)
     Route: 048
     Dates: start: 20150817, end: 2015
  4. DOCUSATE SODIUM. [Concomitant]
     Active Substance: DOCUSATE SODIUM
     Indication: CONSTIPATION PROPHYLAXIS
     Dosage: UNK
     Dates: start: 20150917, end: 2015
  5. VANCOMYCIN [Concomitant]
     Active Substance: VANCOMYCIN
     Indication: CLOSTRIDIUM DIFFICILE INFECTION
     Dosage: UNK
     Dates: start: 20151220
  6. PREDNISONE. [Concomitant]
     Active Substance: PREDNISONE
     Dosage: 10 MG, ONCE DAILY (QD)
     Dates: start: 20151113, end: 20160111
  7. CERTOLIZUMAB PEGOL CD [Suspect]
     Active Substance: CERTOLIZUMAB PEGOL
     Dosage: 400 MG, MONTHLY (QM)
     Route: 058
     Dates: start: 20160111
  8. VALACICLOVIR HYDROCHLORIDE [Concomitant]
     Active Substance: VALACYCLOVIR HYDROCHLORIDE
     Indication: HERPES ZOSTER
     Dosage: 500 MG, 2X/DAY (BID)
     Route: 048
     Dates: start: 20151203, end: 20151215
  9. PANTOPRAZOLE [Concomitant]
     Active Substance: PANTOPRAZOLE SODIUM
     Indication: PRODUCT USED FOR UNKNOWN INDICATION
     Dosage: 40 MG, ONCE DAILY (QD)
     Route: 048
  10. VITAMIN D3 [Concomitant]
     Active Substance: CHOLECALCIFEROL
     Indication: PRODUCT USED FOR UNKNOWN INDICATION
     Dosage: 1 DF 5000 UNITS, EV 2 DAYS (QOD)
     Route: 048
  11. DOCUSATE SODIUM. [Concomitant]
     Active Substance: DOCUSATE SODIUM
     Dosage: 100 MG, 2X/DAY (BID)
     Route: 048
     Dates: start: 20151205
  12. PREDNISONE. [Concomitant]
     Active Substance: PREDNISONE
     Indication: CROHN^S DISEASE
     Dosage: 20 MG, ONCE DAILY (QD)
     Route: 048
     Dates: start: 20150917, end: 2015
  13. CERTOLIZUMAB PEGOL CD [Suspect]
     Active Substance: CERTOLIZUMAB PEGOL
     Indication: CROHN^S DISEASE
     Dosage: 400 MG, MONTHLY (QM)
     Route: 058
     Dates: start: 20140522, end: 20151119
  14. IMURAN [Concomitant]
     Active Substance: AZATHIOPRINE
     Indication: PRODUCT USED FOR UNKNOWN INDICATION
     Dosage: 50 MG, 2X/DAY (BID)
     Route: 048
     Dates: start: 20110610, end: 201507

REACTIONS (4)
  - Pregnancy [Unknown]
  - Clostridium difficile infection [Recovered/Resolved]
  - Herpes zoster [Recovered/Resolved]
  - Abdominal abscess [Recovering/Resolving]

NARRATIVE: CASE EVENT DATE: 201507
